FAERS Safety Report 4618913-4 (Version None)
Quarter: 2005Q1

REPORT INFORMATION
  Report Type: 
  Country: None (occurrence: None)
  Receive Date: 20050323
  Receipt Date: 20050309
  Transmission Date: 20050727
  Serious: Yes (Hospitalization)
  Sender: FDA-Public Use
  Company Number: 2005S1000020

PATIENT
  Age: 69 Year
  Sex: Male
  Weight: 83 kg

DRUGS (16)
  1. CUBICIN [Suspect]
     Indication: IMPLANT SITE INFECTION
     Dosage: 500 MG; Q24H; IV
     Route: 042
     Dates: start: 20050111, end: 20050122
  2. CUBICIN [Suspect]
     Indication: STAPHYLOCOCCAL INFECTION
     Dosage: 500 MG; Q24H; IV
     Route: 042
     Dates: start: 20050111, end: 20050122
  3. ATENOLOL [Concomitant]
  4. AMLODIPINE [Concomitant]
  5. CLOPIDOGREL [Concomitant]
  6. FENOFIBRATE [Concomitant]
  7. FUROSEMIDE [Concomitant]
  8. POTASSIUM CHLORIDE [Concomitant]
  9. PHENYTOIN [Concomitant]
  10. OMEPRAZOLE [Concomitant]
  11. LEVOTHYROXINE [Concomitant]
  12. CLONAZEPAM [Concomitant]
  13. VANCOMYCIN [Concomitant]
  14. VITAMIN B6 [Concomitant]
  15. VITAMIN B-12 [Concomitant]
  16. FISH OIL [Concomitant]

REACTIONS (3)
  - EOSINOPHILIA [None]
  - RASH PRURITIC [None]
  - RHABDOMYOLYSIS [None]
